FAERS Safety Report 6983805-2 (Version None)
Quarter: 2010Q3

REPORT INFORMATION
  Report Type: 
  Country: None (occurrence: None)
  Receive Date: 20100914
  Receipt Date: 20090203
  Transmission Date: 20110219
  Serious: No
  Sender: FDA-Public Use
  Company Number: US-WYE-H08102309

PATIENT
  Age: 60 Year
  Sex: Female
  Weight: 86.26 kg

DRUGS (3)
  1. ADVIL LIQUI-GELS [Suspect]
     Indication: ARTHRALGIA
     Dosage: 2 TABLETS AS NEEDED
     Route: 048
     Dates: start: 20081101, end: 20090203
  2. BENICAR [Concomitant]
  3. LEXAPRO [Concomitant]

REACTIONS (1)
  - COELIAC DISEASE [None]
